FAERS Safety Report 8044638-1 (Version None)
Quarter: 2011Q4

REPORT INFORMATION
  Report Type: 
  Country: None (occurrence: None)
  Receive Date: 20111202
  Receipt Date: 20110909
  Transmission Date: 20120403
  Serious: Yes (Life-Threatening, Hospitalization)
  Sender: FDA-Public Use
  Company Number: 2011SP042752

PATIENT
  Age: 26 Year
  Sex: Female
  Weight: 63.5036 kg

DRUGS (2)
  1. NUVARING [Suspect]
     Indication: PRODUCT USED FOR UNKNOWN INDICATION
     Dosage: 1 DF; VAG
     Route: 067
     Dates: start: 20070111, end: 20101104
  2. IBUPROFEN [Concomitant]

REACTIONS (3)
  - PULMONARY INFARCTION [None]
  - PULMONARY EMBOLISM [None]
  - C-REACTIVE PROTEIN INCREASED [None]
